FAERS Safety Report 15990929 (Version 5)
Quarter: 2019Q3

REPORT INFORMATION
  Report Type: Spontaneous
  Country: US (occurrence: US)
  Receive Date: 20190221
  Receipt Date: 20190823
  Transmission Date: 20191004
  Serious: Yes (Death, Other)
  Sender: FDA-Public Use
  Company Number: US-PFIZER INC-2019075742

PATIENT
  Age: 72 Year
  Sex: Female

DRUGS (14)
  1. PREVACID [Suspect]
     Active Substance: LANSOPRAZOLE
     Indication: NAUSEA
     Dosage: UNK
     Dates: start: 19990318, end: 20031109
  2. PROTONIX [Suspect]
     Active Substance: PANTOPRAZOLE SODIUM
     Indication: NAUSEA
     Dosage: UNK
     Dates: start: 20030606, end: 20031108
  3. PRILOSEC [Suspect]
     Active Substance: OMEPRAZOLE MAGNESIUM
     Dosage: UNK
  4. MILK OF MAGNESIA [Concomitant]
     Active Substance: MAGNESIUM HYDROXIDE
     Dosage: UNK UNK, AS NEEDED
     Dates: start: 1999, end: 2003
  5. PREVACID [Suspect]
     Active Substance: LANSOPRAZOLE
     Indication: VOMITING
     Dosage: 30 MG, UNK
     Route: 048
     Dates: start: 20030513
  6. OMEPRAZOLE. [Suspect]
     Active Substance: OMEPRAZOLE
     Dosage: UNK
  7. TUMS ANTACID [Concomitant]
     Dosage: UNK UNK, AS NEEDED
     Dates: start: 1999, end: 2001
  8. PROTONIX [Suspect]
     Active Substance: PANTOPRAZOLE SODIUM
     Indication: GASTROOESOPHAGEAL REFLUX DISEASE
     Dosage: UNK
     Route: 048
     Dates: start: 1999, end: 2003
  9. NEXIUM [Suspect]
     Active Substance: ESOMEPRAZOLE MAGNESIUM
     Dosage: UNK
  10. PROTONIX [Suspect]
     Active Substance: PANTOPRAZOLE SODIUM
     Indication: VOMITING
     Dosage: UNK
     Route: 048
  11. DEXILANT [Suspect]
     Active Substance: DEXLANSOPRAZOLE
     Dosage: UNK
  12. PREVACID 24 HR [Suspect]
     Active Substance: LANSOPRAZOLE
     Dosage: UNK
  13. PREVACID [Suspect]
     Active Substance: LANSOPRAZOLE
     Indication: GASTROOESOPHAGEAL REFLUX DISEASE
     Dosage: UNK
     Route: 048
     Dates: start: 1999, end: 2003
  14. NEXIUM 24HR [Suspect]
     Active Substance: ESOMEPRAZOLE MAGNESIUM
     Dosage: UNK

REACTIONS (3)
  - Renal failure [Fatal]
  - End stage renal disease [Unknown]
  - Chronic kidney disease [Fatal]

NARRATIVE: CASE EVENT DATE: 20030730
